FAERS Safety Report 19207139 (Version 1)
Quarter: 2021Q2

REPORT INFORMATION
  Report Type: Spontaneous
  Country: US (occurrence: US)
  Receive Date: 20210501
  Receipt Date: 20210501
  Transmission Date: 20210717
  Serious: No
  Sender: FDA-Public Use
  Company Number: US-ASTRAZENECA-2021A272449

PATIENT
  Sex: Female
  Weight: 44.5 kg

DRUGS (3)
  1. COVID VACCINE [Concomitant]
     Indication: COVID-19
     Dosage: UNKNOWN
     Route: 065
  2. FASENRA [Suspect]
     Active Substance: BENRALIZUMAB
     Indication: ASTHMA
     Route: 058
     Dates: start: 202101
  3. FASENRA [Suspect]
     Active Substance: BENRALIZUMAB
     Indication: EOSINOPHIL COUNT INCREASED
     Route: 058
     Dates: start: 202101

REACTIONS (4)
  - Intentional device misuse [Unknown]
  - Fatigue [Unknown]
  - Thinking abnormal [Unknown]
  - Drug ineffective [Unknown]
